FAERS Safety Report 23092445 (Version 2)
Quarter: 2023Q4

REPORT INFORMATION
  Report Type: Other
  Country: ZA (occurrence: None)
  Receive Date: 20231021
  Receipt Date: 20231124
  Transmission Date: 20240110
  Serious: No
  Sender: FDA-Public Use
  Company Number: ZA-ROCHE-2961772

PATIENT
  Sex: Female

DRUGS (1)
  1. ACTEMRA [Suspect]
     Active Substance: TOCILIZUMAB
     Indication: Rheumatoid arthritis
     Route: 058
     Dates: start: 20180206

REACTIONS (4)
  - White blood cell count decreased [Unknown]
  - Haemoglobin increased [Unknown]
  - Alanine aminotransferase increased [Unknown]
  - Aspartate aminotransferase increased [Unknown]

NARRATIVE: CASE EVENT DATE: 20211027
